FAERS Safety Report 14428474 (Version 1)
Quarter: 2018Q1

REPORT INFORMATION
  Report Type: Report from Study
  Country: US (occurrence: US)
  Receive Date: 20180123
  Receipt Date: 20180123
  Transmission Date: 20180509
  Serious: No
  Sender: FDA-Public Use
  Company Number: US-AMGEN-USASL2017165417

PATIENT
  Age: 54 Year
  Sex: Female

DRUGS (1)
  1. REPATHA [Suspect]
     Active Substance: EVOLOCUMAB
     Indication: BLOOD CHOLESTEROL INCREASED
     Dosage: 140 MG, Q2WK
     Route: 065
     Dates: start: 201702

REACTIONS (6)
  - Wrong technique in product usage process [Unknown]
  - Accidental exposure to product [Unknown]
  - Injury associated with device [Unknown]
  - Feeling hot [Unknown]
  - Puncture site haemorrhage [Unknown]
  - Puncture site pain [Unknown]
